FAERS Safety Report 5408218-6 (Version None)
Quarter: 2007Q3

REPORT INFORMATION
  Report Type: 
  Country: None (occurrence: None)
  Receive Date: 20070806
  Receipt Date: 20070806
  Transmission Date: 20080115
  Serious: Yes (Disabling)
  Sender: FDA-Public Use
  Company Number: None

PATIENT
  Sex: Female

DRUGS (1)
  1. ACCUTANE [Suspect]
     Indication: ACNE
     Dates: end: 20030101

REACTIONS (10)
  - ACNE [None]
  - ALOPECIA [None]
  - DEPRESSION [None]
  - MADAROSIS [None]
  - PHOTOSENSITIVITY REACTION [None]
  - SCAR [None]
  - SKIN DISCOLOURATION [None]
  - SOCIAL AVOIDANT BEHAVIOUR [None]
  - SUICIDAL IDEATION [None]
  - VISION BLURRED [None]
